FAERS Safety Report 7420792-7 (Version None)
Quarter: 2011Q2

REPORT INFORMATION
  Report Type: 
  Country: None (occurrence: None)
  Receive Date: 20110408
  Receipt Date: 20110325
  Transmission Date: 20111010
  Serious: Yes (Hospitalization)
  Sender: FDA-Public Use
  Company Number: 1000019786

PATIENT
  Sex: Female

DRUGS (5)
  1. CITALOPRAM (CITALOPRAM HYDROBROMIDE) (TABLETS) [Suspect]
     Dosage: 10 MG, (10 MG, 1 IN 1 D), ORAL
     Route: 048
  2. CITALOPRAM HYDROBROMIDE [Suspect]
     Dosage: ORAL
     Route: 048
  3. OPAMOX (OXAZEPAM) (OXAZEPAM) [Concomitant]
  4. ZYPREXA [Concomitant]
  5. TRYPTOPHAN (TRYPTOPHAN,L-) (TRYPTOPHAN, L-) [Concomitant]

REACTIONS (6)
  - FATIGUE [None]
  - PAIN [None]
  - PARAESTHESIA [None]
  - INSOMNIA [None]
  - MALAISE [None]
  - SINUSITIS [None]
